FAERS Safety Report 6113916-5 (Version None)
Quarter: 2009Q1

REPORT INFORMATION
  Report Type: 
  Country: None (occurrence: None)
  Receive Date: 20090312
  Receipt Date: 20081006
  Transmission Date: 20090719
  Serious: No
  Sender: FDA-Public Use
  Company Number: US-ABBOTT-08P-163-0478471-00

PATIENT
  Weight: 77.18 kg

DRUGS (6)
  1. LUPRON DEPOT [Suspect]
     Indication: PROSTATE CANCER
     Route: 030
     Dates: start: 20080926
  2. CANDESARTAN CILEXETIL [Concomitant]
     Indication: CARDIAC DISORDER
  3. METOPROLOL SUCCINATE [Concomitant]
     Indication: CARDIAC DISORDER
  4. UNKNOWN GOUT MEDICATION [Concomitant]
     Indication: GOUT
  5. ASPIRIN [Concomitant]
     Indication: DRUG USE FOR UNKNOWN INDICATION
  6. WARFARIN SODIUM [Concomitant]
     Indication: CARDIAC DISORDER
     Dates: start: 20080929

REACTIONS (3)
  - DIZZINESS [None]
  - HEART RATE INCREASED [None]
  - HYPERHIDROSIS [None]
